FAERS Safety Report 9299163 (Version 4)
Quarter: 2014Q1

REPORT INFORMATION
  Report Type: Spontaneous
  Country: IT (occurrence: IT)
  Receive Date: 20130520
  Receipt Date: 20140218
  Transmission Date: 20141002
  Serious: Yes (Hospitalization)
  Sender: FDA-Public Use
  Company Number: IT-MERCK-1305ITA009376

PATIENT
  Age: 47 Year
  Sex: Female
  Weight: 52 kg

DRUGS (3)
  1. PEGINTRON [Suspect]
     Indication: HEPATITIS C
     Dosage: 80 MICROGRAM, QW
     Route: 058
     Dates: start: 20130222
  2. COPEGUS [Suspect]
     Indication: HEPATITIS C
     Dosage: UNK, QD, DAILY DOSE 800MG
     Route: 048
     Dates: start: 20130222
  3. TELAPREVIR [Suspect]
     Indication: HEPATITIS C
     Dosage: UNK, QD, DAILY DOSE 2250MG
     Route: 048
     Dates: start: 20130222

REACTIONS (1)
  - Anaemia [Recovered/Resolved]
